FAERS Safety Report 19198611 (Version 2)
Quarter: 2021Q2

REPORT INFORMATION
  Report Type: Report from Study
  Country: CO (occurrence: CO)
  Receive Date: 20210430
  Receipt Date: 20210611
  Transmission Date: 20210717
  Serious: Yes (Hospitalization)
  Sender: FDA-Public Use
  Company Number: CO-AUROBINDO-AUR-APL-2021-008669

PATIENT
  Age: 29 Year
  Sex: Male

DRUGS (4)
  1. FOLOTYN [Suspect]
     Active Substance: PRALATREXATE
     Dosage: 46 MILLIGRAM (THIRD CYCLE)
     Route: 042
     Dates: start: 20210601
  2. FOLOTYN [Suspect]
     Active Substance: PRALATREXATE
     Indication: ANAPLASTIC LARGE-CELL LYMPHOMA
     Dosage: 46 MILLIGRAM, EVERY WEEK
     Route: 042
     Dates: start: 20210416
  3. FOLOTYN [Suspect]
     Active Substance: PRALATREXATE
     Dosage: 46 MILLIGRAM, EVERY WEEK
     Route: 042
     Dates: start: 20210423
  4. FOLOTYN [Suspect]
     Active Substance: PRALATREXATE
     Indication: PERIPHERAL T-CELL LYMPHOMA UNSPECIFIED
     Dosage: 46 MILLIGRAM, DAILY
     Route: 042
     Dates: start: 20210204, end: 20210322

REACTIONS (9)
  - Urinary tract infection [Unknown]
  - Inflammation [Not Recovered/Not Resolved]
  - Blood uric acid increased [Unknown]
  - Mass [Unknown]
  - Arthralgia [Not Recovered/Not Resolved]
  - Red blood cell count decreased [Unknown]
  - Pain [Unknown]
  - Pyrexia [Unknown]
  - Discomfort [Unknown]

NARRATIVE: CASE EVENT DATE: 20210210
